FAERS Safety Report 10264648 (Version 1)
Quarter: 2014Q2

REPORT INFORMATION
  Report Type: Spontaneous
  Country: US (occurrence: US)
  Receive Date: 20140627
  Receipt Date: 20140627
  Transmission Date: 20141212
  Serious: Yes (Hospitalization)
  Sender: FDA-Public Use
  Company Number: US-ELI_LILLY_AND_COMPANY-US201406005915

PATIENT
  Sex: Female

DRUGS (12)
  1. HUMALOG LISPRO [Suspect]
     Indication: DIABETES MELLITUS
     Route: 065
  2. HUMALOG LISPRO [Suspect]
     Indication: DIABETES MELLITUS
     Route: 065
  3. HUMALOG 25% LISPRO, 75% NPL [Suspect]
     Indication: DIABETES MELLITUS
     Dosage: 58 U, EACH MORNING
     Route: 065
  4. HUMALOG 25% LISPRO, 75% NPL [Suspect]
     Dosage: 32 U, EACH EVENING
     Route: 065
  5. HUMALOG 25% LISPRO, 75% NPL [Suspect]
     Dosage: 56 U, EACH MORNING
     Route: 065
  6. HUMALOG 25% LISPRO, 75% NPL [Suspect]
     Dosage: 30 U, EACH EVENING
     Route: 065
  7. HUMALOG 25% LISPRO, 75% NPL [Suspect]
     Dosage: 50 U, EACH MORNING
     Route: 065
  8. HUMALOG 25% LISPRO, 75% NPL [Suspect]
     Dosage: 25 U, EACH EVENING
     Route: 065
  9. METFORMIN [Concomitant]
  10. GLIMEPIRIDE [Concomitant]
  11. SIMVASTATIN [Concomitant]
  12. HYDROCHLOROTHIAZIDE [Concomitant]

REACTIONS (19)
  - Blood glucose abnormal [Unknown]
  - Decubitus ulcer [Recovered/Resolved]
  - Weight increased [Unknown]
  - Headache [Unknown]
  - Injection site reaction [Unknown]
  - Mobility decreased [Unknown]
  - Pain in extremity [Unknown]
  - Oedema peripheral [Unknown]
  - Vision blurred [Unknown]
  - Eye pain [Unknown]
  - Contusion [Unknown]
  - Feeling abnormal [Unknown]
  - Amnesia [Unknown]
  - Blood glucose increased [Unknown]
  - Mental disorder [Unknown]
  - Glycosylated haemoglobin increased [Unknown]
  - Blood glucose decreased [Unknown]
  - Feeling drunk [Unknown]
  - Drug ineffective [Unknown]
